FAERS Safety Report 5144555-0 (Version None)
Quarter: 2006Q4

REPORT INFORMATION
  Report Type: 
  Country: None (occurrence: None)
  Receive Date: 20061031
  Receipt Date: 20061018
  Transmission Date: 20070319
  Serious: Yes (Life-Threatening, Hospitalization)
  Sender: FDA-Public Use
  Company Number: 2006127487

PATIENT
  Age: 77 Year
  Sex: Male
  Weight: 76 kg

DRUGS (2)
  1. SUTENT [Suspect]
     Indication: METASTATIC RENAL CELL CARCINOMA
     Dosage: 50 MG (50 MG, QD EVERY DAY), ORAL
     Route: 048
     Dates: start: 20060918, end: 20061010
  2. IBUPROFEN [Concomitant]

REACTIONS (13)
  - ANAL ULCER [None]
  - ARTHRALGIA [None]
  - DEHYDRATION [None]
  - DRY MOUTH [None]
  - DRY SKIN [None]
  - DYSPHAGIA [None]
  - FLUID INTAKE REDUCED [None]
  - GAIT DISTURBANCE [None]
  - ORAL INTAKE REDUCED [None]
  - RASH [None]
  - SKIN EXFOLIATION [None]
  - SKIN ULCER [None]
  - YELLOW SKIN [None]
